FAERS Safety Report 8757233 (Version 2)
Quarter: 2013Q4

REPORT INFORMATION
  Report Type: Spontaneous
  Country: CA (occurrence: CA)
  Receive Date: 20120828
  Receipt Date: 20131101
  Transmission Date: 20140711
  Serious: No
  Sender: FDA-Public Use
  Company Number: CA-009507513-1208CAN005793

PATIENT
  Age: 46 Year
  Sex: Female
  Weight: 105 kg

DRUGS (4)
  1. SAPHRIS [Suspect]
     Indication: SCHIZOPHRENIA
     Dosage: 5 MG, BID
     Route: 060
     Dates: start: 20120601, end: 20120610
  2. SYNTHROID [Concomitant]
     Indication: THYROID DISORDER
     Dosage: 0.125 MG, QD
     Route: 048
     Dates: start: 2008
  3. RISPERIDONE [Concomitant]
     Indication: SCHIZOPHRENIA
     Dosage: 2 MG, QD
     Route: 048
     Dates: start: 201207
  4. IMOVANE [Concomitant]
     Indication: SLEEP DISORDER THERAPY
     Dosage: 7.5 MG, QD
     Route: 048

REACTIONS (1)
  - Dyspnoea [Recovered/Resolved]
